FAERS Safety Report 25468549 (Version 1)
Quarter: 2025Q2

REPORT INFORMATION
  Report Type: Spontaneous
  Country: US (occurrence: US)
  Receive Date: 20250623
  Receipt Date: 20250623
  Transmission Date: 20250717
  Serious: No
  Sender: SANOFI AVENTIS
  Company Number: US-SA-2025SA171653

PATIENT
  Age: 67 Year
  Sex: Female

DRUGS (28)
  1. KEVZARA [Suspect]
     Active Substance: SARILUMAB
     Indication: Back pain
     Dosage: 200 MG, QOW
     Route: 058
  2. ALLOPURINOL [Concomitant]
     Active Substance: ALLOPURINOL
  3. FOLIC ACID [Concomitant]
     Active Substance: FOLIC ACID
  4. METHOTREXATE [Concomitant]
     Active Substance: METHOTREXATE
  5. FUROSEMIDE [Concomitant]
     Active Substance: FUROSEMIDE
  6. GABAPENTIN [Concomitant]
     Active Substance: GABAPENTIN
  7. TRAMADOL HCL [Concomitant]
     Active Substance: TRAMADOL HYDROCHLORIDE
  8. ALBUTEROL SULFATE [Concomitant]
     Active Substance: ALBUTEROL SULFATE
  9. AMMONIUM LACTATE [Concomitant]
     Active Substance: AMMONIUM LACTATE
  10. AZELASTINE HYDROCHLORIDE [Concomitant]
     Active Substance: AZELASTINE HYDROCHLORIDE
  11. CLONIDINE HYDROCHLORIDE [Concomitant]
     Active Substance: CLONIDINE HYDROCHLORIDE
  12. FERROUS SULFATE [Concomitant]
     Active Substance: FERROUS SULFATE
  13. FOLIC ACID [Concomitant]
     Active Substance: FOLIC ACID
  14. GABAPENTIN [Concomitant]
     Active Substance: GABAPENTIN
  15. LORATADINE [Concomitant]
     Active Substance: LORATADINE
  16. TYLENOL 8HR [Concomitant]
     Active Substance: ACETAMINOPHEN
  17. VITAMIN B COMPLEX [Concomitant]
     Active Substance: CYANOCOBALAMIN\DEXPANTHENOL\NIACINAMIDE\PYRIDOXINE HYDROCHLORIDE\RIBOFLAVIN 5^-PHOSPHATE SODIUM\THIA
  18. VITAMIN D NOS [Concomitant]
     Active Substance: CHOLECALCIFEROL\ERGOCALCIFEROL
  19. .ALPHA.-TOCOPHEROL [Concomitant]
     Active Substance: .ALPHA.-TOCOPHEROL
  20. ASPIRIN [Concomitant]
     Active Substance: ASPIRIN
  21. CARVEDILOL [Concomitant]
     Active Substance: CARVEDILOL
  22. ESCITALOPRAM [Concomitant]
     Active Substance: ESCITALOPRAM OXALATE
  23. VALSARTAN [Concomitant]
     Active Substance: VALSARTAN
  24. METFORMIN HYDROCHLORIDE [Concomitant]
     Active Substance: METFORMIN HYDROCHLORIDE
  25. MONTELUKAST [Concomitant]
     Active Substance: MONTELUKAST
  26. SIMVASTATIN [Concomitant]
     Active Substance: SIMVASTATIN
  27. BACLOFEN [Concomitant]
     Active Substance: BACLOFEN
  28. FLUTICASONE PROPIONATE [Concomitant]
     Active Substance: FLUTICASONE PROPIONATE

REACTIONS (4)
  - Constipation [Recovered/Resolved]
  - Flatulence [Recovered/Resolved]
  - Tremor [Not Recovered/Not Resolved]
  - Product use in unapproved indication [Unknown]
